FAERS Safety Report 8866382 (Version 1)
Quarter: 2012Q4

REPORT INFORMATION
  Report Type: 
  Country: US (occurrence: US)
  Receive Date: 20121025
  Receipt Date: 20121025
  Transmission Date: 20130627
  Serious: Yes (Hospitalization, Other)
  Sender: FDA-Public Use
  Company Number: US-UCBSA-052329

PATIENT
  Age: 26 Year
  Sex: Female
  Weight: 69.5 kg

DRUGS (5)
  1. CIMZIA [Suspect]
     Indication: RHEUMATOID ARTHRITIS
     Route: 058
     Dates: start: 20111026, end: 20120119
  2. METHOTREXATE [Concomitant]
     Route: 058
     Dates: start: 20110222, end: 20120119
  3. IBUPROFEN [Concomitant]
     Route: 048
     Dates: start: 2010
  4. PREDNISONE [Concomitant]
     Route: 048
     Dates: start: 20101117
  5. PRENATAL MULTIVITAMINS [Concomitant]
     Dosage: 1 TABLET DAILY
     Route: 048
     Dates: start: 201201, end: 20120911

REACTIONS (2)
  - Labour onset delayed [Unknown]
  - Pregnancy [Recovered/Resolved]
